FAERS Safety Report 8143972-4 (Version None)
Quarter: 2012Q1

REPORT INFORMATION
  Report Type: 
  Country: None (occurrence: None)
  Receive Date: 20120217
  Receipt Date: 20120217
  Transmission Date: 20120608
  Serious: No
  Sender: FDA-Public Use
  Company Number: None

PATIENT
  Age: 57 Year
  Sex: Male
  Weight: 95.254 kg

DRUGS (1)
  1. PRADAXA [Suspect]
     Indication: ATRIAL FIBRILLATION
     Dosage: 150 MG
     Route: 048
     Dates: start: 20111230, end: 20120215

REACTIONS (4)
  - ORAL PAIN [None]
  - PROCTITIS [None]
  - HEART RATE IRREGULAR [None]
  - RECTAL HAEMORRHAGE [None]
